FAERS Safety Report 8256744-7 (Version None)
Quarter: 2012Q2

REPORT INFORMATION
  Report Type: 
  Country: None (occurrence: None)
  Receive Date: 20120403
  Receipt Date: 20120330
  Transmission Date: 20120825
  Serious: Yes (Hospitalization)
  Sender: FDA-Public Use
  Company Number: US-PFIZER INC-2012078139

PATIENT
  Sex: Male
  Weight: 97 kg

DRUGS (1)
  1. PROTONIX [Suspect]
     Indication: ABDOMINAL DISCOMFORT
     Dosage: 40 MG, DAILY

REACTIONS (2)
  - POLLAKIURIA [None]
  - LUNG DISORDER [None]
